FAERS Safety Report 4370270-7 (Version None)
Quarter: 2004Q2

REPORT INFORMATION
  Report Type: 
  Country: None (occurrence: None)
  Receive Date: 20040603
  Receipt Date: 20040401
  Transmission Date: 20050107
  Serious: No
  Sender: FDA-Public Use
  Company Number: US-BRISTOL-MYERS SQUIBB COMPANY-12549846

PATIENT
  Age: 40 Year
  Sex: Male

DRUGS (7)
  1. ABILIFY [Suspect]
     Indication: BIPOLAR II DISORDER
     Dosage: VARYING DOSES; DECREASED TO 5 MG/DAY AFTER EVENTS OCCURRED, THEN DISCONTINUED.
     Route: 048
     Dates: start: 20020101, end: 20040301
  2. ABILIFY [Suspect]
     Indication: POST-TRAUMATIC STRESS DISORDER
     Dosage: VARYING DOSES; DECREASED TO 5 MG/DAY AFTER EVENTS OCCURRED, THEN DISCONTINUED.
     Route: 048
     Dates: start: 20020101, end: 20040301
  3. BENZTROPINE MESYLATE [Concomitant]
  4. RISPERDAL [Concomitant]
  5. CLONAZEPAM [Concomitant]
  6. LITHIUM CARBONATE [Concomitant]
  7. PROZAC [Concomitant]

REACTIONS (5)
  - ALANINE AMINOTRANSFERASE INCREASED [None]
  - COUGH [None]
  - OEDEMA [None]
  - RHINITIS [None]
  - SOMNOLENCE [None]
